FAERS Safety Report 6970141-3 (Version None)
Quarter: 2010Q3

REPORT INFORMATION
  Report Type: 
  Country: None (occurrence: None)
  Receive Date: 20100908
  Receipt Date: 20100824
  Transmission Date: 20110219
  Serious: Yes (Death, Hospitalization)
  Sender: FDA-Public Use
  Company Number: BR-MEDIMMUNE-MEDI-0011452

PATIENT
  Sex: Female
  Weight: 6.3 kg

DRUGS (5)
  1. SYNAGIS [Suspect]
     Indication: CARDIAC DISORDER
     Dates: start: 20100528, end: 20100528
  2. SYNAGIS [Suspect]
  3. GARDENAL [Concomitant]
  4. PROPRANOLOL [Concomitant]
     Indication: CARDIAC DISORDER
     Dosage: 10 MG, 3 DOSES OF: 0.3ML, 0.3ML, 0.2ML
  5. POLIVITAMIN [Concomitant]
     Indication: VITAMIN SUPPLEMENTATION

REACTIONS (4)
  - FREQUENT BOWEL MOVEMENTS [None]
  - MALNUTRITION [None]
  - NOSOCOMIAL INFECTION [None]
  - WEIGHT DECREASED [None]
